FAERS Safety Report 7214804-3 (Version None)
Quarter: 2011Q1

REPORT INFORMATION
  Report Type: 
  Country: None (occurrence: None)
  Receive Date: 20110107
  Receipt Date: 20100317
  Transmission Date: 20110831
  Serious: No
  Sender: FDA-Public Use
  Company Number: A0848675A

PATIENT
  Age: 61 Year
  Weight: 90.9 kg

DRUGS (10)
  1. LISINOPRIL [Concomitant]
     Indication: BLOOD PRESSURE
     Dosage: 1U PER DAY
     Route: 048
  2. GABAPENTIN [Concomitant]
     Dosage: 1U THREE TIMES PER DAY
     Route: 048
  3. ATENOLOL [Concomitant]
     Indication: BLOOD PRESSURE
     Dosage: 1U PER DAY
     Route: 048
  4. ANAGRELIDE HCL [Concomitant]
     Dosage: 1U TWICE PER DAY
     Route: 048
  5. OXYCODONE HCL AND ACETAMINOPHEN [Concomitant]
     Indication: PAIN
     Dosage: 1U FOUR TIMES PER DAY
     Route: 048
  6. GLIMEPIRIDE [Concomitant]
     Dosage: 1U PER DAY
     Route: 048
  7. JANUVIA [Concomitant]
     Dosage: 1U PER DAY
     Route: 048
  8. LOVAZA [Suspect]
     Dosage: 2U TWICE PER DAY
     Route: 048
  9. ALPRAZOLAM [Concomitant]
     Indication: ANXIETY
     Dosage: 1U THREE TIMES PER DAY
     Route: 048
  10. LANSOPRAZOLE [Concomitant]
     Dosage: 1U PER DAY
     Route: 048

REACTIONS (1)
  - BLOOD CHOLESTEROL INCREASED [None]
